FAERS Safety Report 25339325 (Version 1)
Quarter: 2025Q2

REPORT INFORMATION
  Report Type: Spontaneous
  Country: GB (occurrence: GB)
  Receive Date: 20250521
  Receipt Date: 20250521
  Transmission Date: 20250716
  Serious: Yes (Other)
  Sender: ABBVIE
  Company Number: None

PATIENT
  Age: 57 Year
  Sex: Male

DRUGS (2)
  1. ATOGEPANT [Suspect]
     Active Substance: ATOGEPANT
     Indication: Migraine
     Dosage: 60MG ONCE A DAY?FIRST ADMIN DATE: 17 FEB 2025
     Route: 048
     Dates: end: 20250220
  2. ATOGEPANT [Suspect]
     Active Substance: ATOGEPANT
     Indication: Migraine
     Dosage: 60MG ONCE A DAY
     Route: 048
     Dates: start: 20250331, end: 20250409

REACTIONS (7)
  - Renal impairment [Unknown]
  - Diarrhoea [Recovered/Resolved]
  - Lethargy [Recovered/Resolved]
  - Illness [Recovered/Resolved]
  - Diarrhoea [Unknown]
  - Lethargy [Unknown]
  - Illness [Unknown]

NARRATIVE: CASE EVENT DATE: 20250101
